FAERS Safety Report 7588201-5 (Version None)
Quarter: 2011Q3

REPORT INFORMATION
  Report Type: 
  Country: None (occurrence: None)
  Receive Date: 20110705
  Receipt Date: 20110609
  Transmission Date: 20111222
  Serious: Yes (Hospitalization)
  Sender: FDA-Public Use
  Company Number: US-BAYER-200944025NA

PATIENT
  Age: 39 Year
  Sex: Female
  Weight: 90.703 kg

DRUGS (10)
  1. YASMIN [Suspect]
     Indication: ACNE
     Dosage: 1 TABLET PER DAY
     Dates: start: 20041001, end: 20080101
  2. METFORMIN HCL [Concomitant]
  3. YAZ [Suspect]
     Indication: PRODUCT USED FOR UNKNOWN INDICATION
     Dosage: UNK
     Dates: start: 20090201, end: 20091115
  4. TOPAMAX [Concomitant]
  5. SYNTHROID [Concomitant]
     Dosage: 175 ?G, UNK
  6. DROSPIRENONE AND ETHINYL ESTRADIOL [Suspect]
     Indication: ACNE
     Dosage: 1 TABLET PER DAY
     Dates: start: 20090201, end: 20091101
  7. E-MYCIN [Concomitant]
     Indication: ACNE
  8. TETRACYCLINE [Concomitant]
     Indication: ACNE
  9. IMITREX [Concomitant]
  10. AMBIEN [Concomitant]

REACTIONS (10)
  - CHOLECYSTITIS CHRONIC [None]
  - NAUSEA [None]
  - PROCEDURAL PAIN [None]
  - DYSPEPSIA [None]
  - CHOLESTEROSIS [None]
  - PAIN [None]
  - GASTROOESOPHAGEAL REFLUX DISEASE [None]
  - MEDICAL DIET [None]
  - CHOLELITHIASIS [None]
  - ABDOMINAL PAIN UPPER [None]
